FAERS Safety Report 12810961 (Version 3)
Quarter: 2016Q4

REPORT INFORMATION
  Report Type: Spontaneous
  Country: VE (occurrence: VE)
  Receive Date: 20161005
  Receipt Date: 20161111
  Transmission Date: 20170207
  Serious: Yes (Hospitalization, Other)
  Sender: FDA-Public Use
  Company Number: VE-GLAXOSMITHKLINE-VE2016GSK143089

PATIENT
  Sex: Female
  Weight: 47 kg

DRUGS (1)
  1. SERETIDE [Suspect]
     Active Substance: FLUTICASONE PROPIONATE\SALMETEROL XINAFOATE
     Indication: ASTHMA
     Dosage: 2 PUFF(S), QD
     Route: 048
     Dates: end: 201601

REACTIONS (7)
  - Dyspnoea [Unknown]
  - Flushing [Unknown]
  - Asthma [Unknown]
  - Hypersensitivity [Unknown]
  - Product availability issue [Unknown]
  - Infection [Recovered/Resolved]
  - Asthmatic crisis [Not Recovered/Not Resolved]
